FAERS Safety Report 21401046 (Version 1)
Quarter: 2022Q4

REPORT INFORMATION
  Report Type: Spontaneous
  Country: DE (occurrence: DE)
  Receive Date: 20221003
  Receipt Date: 20221003
  Transmission Date: 20230112
  Serious: Yes (Hospitalization)
  Sender: FDA-Public Use
  Company Number: DE-ADRED-08371-01

PATIENT
  Age: 86 Year
  Sex: Male
  Weight: 93 kg

DRUGS (9)
  1. XARELTO [Suspect]
     Active Substance: RIVAROXABAN
     Indication: Product used for unknown indication
     Dosage: 15 MG, OM
     Route: 048
  2. DIGITOXIN [Concomitant]
     Active Substance: DIGITOXIN
     Dosage: 0.07 MG, 1-0-0-0
  3. CHOLECALCIFEROL [Concomitant]
     Active Substance: CHOLECALCIFEROL
     Dosage: 500 MG, OM
  4. MAGNESIUM [Concomitant]
     Active Substance: MAGNESIUM
     Dosage: 300 MG, PRN
  5. LISINOPRIL [Concomitant]
     Active Substance: LISINOPRIL
     Dosage: 5 MG, PRN
  6. LEVOTHYROXINE SODIUM\POTASSIUM IODIDE [Concomitant]
     Active Substance: LEVOTHYROXINE SODIUM\POTASSIUM IODIDE
     Dosage: 1 DF (196.2|75 MCG/MCG), OM
  7. VITAMIN D3 K2 [Concomitant]
     Dosage: ONCE PER WEEK
  8. TORSEMIDE [Concomitant]
     Active Substance: TORSEMIDE
     Dosage: 40 MG, OM
  9. ATORVASTATIN [Concomitant]
     Active Substance: ATORVASTATIN
     Dosage: 20 MG, QD

REACTIONS (5)
  - Electrocardiogram abnormal [Unknown]
  - General physical health deterioration [Unknown]
  - Renal impairment [Unknown]
  - Anaemia [Unknown]
  - Dyspnoea [Unknown]
